FAERS Safety Report 23302197 (Version 4)
Quarter: 2024Q1

REPORT INFORMATION
  Report Type: Spontaneous
  Country: US (occurrence: US)
  Receive Date: 20231215
  Receipt Date: 20240207
  Transmission Date: 20240410
  Serious: Yes (Death, Other)
  Sender: FDA-Public Use
  Company Number: US-PFIZER INC-PV202300202842

PATIENT
  Age: 80 Year
  Sex: Male
  Weight: 99.773 kg

DRUGS (2)
  1. VYNDAMAX [Suspect]
     Active Substance: TAFAMIDIS
     Indication: Cardiac amyloidosis
     Dosage: 61 MG
  2. VYNDAMAX [Suspect]
     Active Substance: TAFAMIDIS
     Dosage: UNK UNK, 1X/DAY
     Dates: start: 2021

REACTIONS (3)
  - Cardiac amyloidosis [Fatal]
  - Disease progression [Fatal]
  - Hypoaesthesia [Unknown]
